FAERS Safety Report 21265913 (Version 3)
Quarter: 2022Q3

REPORT INFORMATION
  Report Type: Spontaneous
  Country: US (occurrence: US)
  Receive Date: 20220829
  Receipt Date: 20220914
  Transmission Date: 20221027
  Serious: No
  Sender: FDA-Public Use
  Company Number: US-BRISTOL-MYERS SQUIBB COMPANY-2022-097275

PATIENT
  Age: 78 Year
  Sex: Male
  Weight: 79.83 kg

DRUGS (1)
  1. REVLIMID [Suspect]
     Active Substance: LENALIDOMIDE
     Indication: Plasma cell myeloma
     Dosage: FREQUENCY : DAILY X 14 DAYS EVERY 21 DAYS.
     Route: 048
     Dates: start: 20220512

REACTIONS (5)
  - Sinus disorder [Unknown]
  - Platelet count decreased [Not Recovered/Not Resolved]
  - Intentional product use issue [Unknown]
  - Rhinorrhoea [Unknown]
  - Pruritus [Recovering/Resolving]
